FAERS Safety Report 6708842-4 (Version None)
Quarter: 2010Q2

REPORT INFORMATION
  Report Type: 
  Country: None (occurrence: None)
  Receive Date: 20100503
  Receipt Date: 20100503
  Transmission Date: 20101027
  Serious: Yes (Life-Threatening, Hospitalization)
  Sender: FDA-Public Use
  Company Number: None

PATIENT
  Age: 36 Year
  Sex: Female
  Weight: 81.6475 kg

DRUGS (2)
  1. BEXTRA [Suspect]
     Indication: ARTHRALGIA
     Dosage: 1 EVERY 4 TO 6 HOURS PO
     Route: 048
     Dates: start: 20020301, end: 20020930
  2. VIOXX [Suspect]
     Dosage: 1 EVERY 4 TO 6 HOURS PO
     Route: 048
     Dates: start: 20020301, end: 20020930

REACTIONS (8)
  - ABDOMINAL DISCOMFORT [None]
  - DIZZINESS [None]
  - FATIGUE [None]
  - FEELING ABNORMAL [None]
  - MALAISE [None]
  - MYOCARDIAL INFARCTION [None]
  - NAUSEA [None]
  - SYNCOPE [None]
